FAERS Safety Report 4743284-2 (Version None)
Quarter: 2005Q3

REPORT INFORMATION
  Report Type: 
  Country: None (occurrence: None)
  Receive Date: 20050809
  Receipt Date: 20050727
  Transmission Date: 20060218
  Serious: Yes (Other)
  Sender: FDA-Public Use
  Company Number: 2005-154

PATIENT
  Age: 26 Year
  Sex: Male
  Weight: 90.7194 kg

DRUGS (1)
  1. ETHOSUXIMIDE CAPSULE, USP 250MG (BANNER) [Suspect]
     Indication: EPILEPSY
     Dosage: 2 AM, 1 NOON, 2 HS

REACTIONS (2)
  - CONDITION AGGRAVATED [None]
  - EPILEPSY [None]
